FAERS Safety Report 5217053-3 (Version None)
Quarter: 2007Q1

REPORT INFORMATION
  Report Type: 
  Country: None (occurrence: None)
  Receive Date: 20070124
  Receipt Date: 20070118
  Transmission Date: 20070707
  Serious: Yes (Other)
  Sender: FDA-Public Use
  Company Number: DE-ROCHE-476247

PATIENT
  Age: 79 Year
  Sex: Female
  Weight: 65 kg

DRUGS (2)
  1. BONVIVA [Suspect]
     Indication: OSTEOPOROSIS
     Dosage: FORM REPORTED AS SYRINGE.
     Route: 042
     Dates: start: 20061004, end: 20061004
  2. D3-VICOTRAT [Concomitant]
     Indication: VITAMIN D DEFICIENCY

REACTIONS (5)
  - ARRHYTHMIA [None]
  - DIZZINESS [None]
  - POLLAKIURIA [None]
  - PRURITUS [None]
  - SWELLING FACE [None]
